FAERS Safety Report 9293885 (Version 1)
Quarter: 2013Q1

REPORT INFORMATION
  Report Type: Spontaneous
  Country: US (occurrence: None)
  Receive Date: 20121214
  Receipt Date: 20121214
  Transmission Date: 20140127
  Serious: Yes (Other)
  Sender: FDA-Public Use
  Company Number: 1208USA010196

PATIENT
  Age: 70 Year
  Sex: Female

DRUGS (2)
  1. JANUVIA (SITAGLIPTIN PHOSPHATE)FILM-COATED TABLET [Suspect]
     Indication: TYPE 2 DIABETES MELLITUS
     Route: 048
  2. METFORMIN (METFORMIN) [Concomitant]

REACTIONS (1)
  - Pancreatitis [None]
